FAERS Safety Report 15877410 (Version 2)
Quarter: 2019Q1

REPORT INFORMATION
  Report Type: Spontaneous
  Country: ES (occurrence: ES)
  Receive Date: 20190128
  Receipt Date: 20190322
  Transmission Date: 20190417
  Serious: Yes (Death, Hospitalization, Other)
  Sender: FDA-Public Use
  Company Number: ES-BIOGEN-2019BI00687549

PATIENT
  Age: 36 Year
  Sex: Female

DRUGS (1)
  1. AVONEX [Suspect]
     Active Substance: INTERFERON BETA-1A
     Indication: MULTIPLE SCLEROSIS
     Route: 050

REACTIONS (6)
  - Scedosporium infection [Fatal]
  - Ischaemic stroke [Fatal]
  - Off label use [Unknown]
  - Infective aneurysm [Unknown]
  - Subarachnoid haemorrhage [Unknown]
  - Secondary progressive multiple sclerosis [Unknown]
